FAERS Safety Report 7451577-3 (Version None)
Quarter: 2011Q2

REPORT INFORMATION
  Report Type: 
  Country: None (occurrence: None)
  Receive Date: 20110502
  Receipt Date: 20100514
  Transmission Date: 20111010
  Serious: No
  Sender: FDA-Public Use
  Company Number: US-ASTRAZENECA-2010SE08198

PATIENT
  Age: 51 Year
  Sex: Female

DRUGS (6)
  1. CRESTOR [Suspect]
     Route: 048
  2. NEXIUM [Suspect]
     Dosage: ONCE A DAY
     Route: 048
  3. CRESTOR [Suspect]
     Route: 048
     Dates: start: 20040101
  4. ZETIA [Suspect]
  5. NEXIUM [Suspect]
     Dosage: ONCE A DAY
     Route: 048
  6. NEXIUM [Suspect]
     Dosage: TWO TIMES A DAY
     Route: 048

REACTIONS (7)
  - VOMITING [None]
  - MUSCLE DISORDER [None]
  - ARTHRALGIA [None]
  - NAUSEA [None]
  - ILL-DEFINED DISORDER [None]
  - WEIGHT DECREASED [None]
  - ABDOMINAL DISCOMFORT [None]
